FAERS Safety Report 23843339 (Version 1)
Quarter: 2024Q2

REPORT INFORMATION
  Report Type: Spontaneous
  Country: US (occurrence: US)
  Receive Date: 20240510
  Receipt Date: 20240510
  Transmission Date: 20240716
  Serious: Yes (Other)
  Sender: FDA-Public Use
  Company Number: US-NOVOPROD-1216012

PATIENT
  Age: 50 Year
  Sex: Female

DRUGS (2)
  1. SEMAGLUTIDE [Suspect]
     Active Substance: SEMAGLUTIDE
     Indication: Obesity
     Dosage: 2.5 MG, QW
     Route: 058
     Dates: start: 20240222, end: 20240501
  2. WEGOVY [Suspect]
     Active Substance: SEMAGLUTIDE
     Indication: Obesity

REACTIONS (3)
  - Platelet count decreased [Not Recovered/Not Resolved]
  - Contusion [Unknown]
  - Nausea [Unknown]

NARRATIVE: CASE EVENT DATE: 20240301
